FAERS Safety Report 4441554-9 (Version None)
Quarter: 2004Q3

REPORT INFORMATION
  Report Type: 
  Country: None (occurrence: None)
  Receive Date: 20040728
  Receipt Date: 20040319
  Transmission Date: 20050211
  Serious: No
  Sender: FDA-Public Use
  Company Number: US_031098205

PATIENT
  Age: 43 Year
  Sex: Male
  Weight: 91 kg

DRUGS (4)
  1. STRATTERA [Suspect]
  2. PROZAC WEEKLY [Suspect]
     Dosage: 90 MG/WEEK
  3. PROVIGIL [Concomitant]
  4. DORYX [Concomitant]

REACTIONS (3)
  - DRUG INTERACTION [None]
  - DYSGEUSIA [None]
  - WEIGHT DECREASED [None]
